FAERS Safety Report 7547646-X (Version None)
Quarter: 2011Q2

REPORT INFORMATION
  Report Type: 
  Country: None (occurrence: None)
  Receive Date: 20110614
  Receipt Date: 20110609
  Transmission Date: 20111010
  Serious: Yes (Other)
  Sender: FDA-Public Use
  Company Number: GB-MERCK-1106GBR00044

PATIENT
  Age: 89 Year
  Sex: Female

DRUGS (12)
  1. QUININE SULFATE [Concomitant]
     Route: 048
  2. PRINIVIL [Suspect]
     Route: 048
  3. AMITRIPTYLINE HYDROCHLORIDE [Concomitant]
     Route: 048
  4. LACTULOSE [Concomitant]
     Route: 065
  5. POLYETHYLENE GLYCOL [Concomitant]
     Route: 065
  6. PRINIVIL [Suspect]
     Indication: HYPERTENSION
     Route: 048
     Dates: start: 20100101, end: 20110518
  7. AMLODIPINE [Concomitant]
     Route: 048
  8. NEFOPAM [Concomitant]
     Route: 048
     Dates: start: 20110511, end: 20110518
  9. OMEPRAZOLE [Concomitant]
     Route: 065
  10. ACETAMINOPHEN [Concomitant]
     Route: 065
  11. SIMVASTATIN [Concomitant]
     Route: 048
  12. ASPIRIN [Concomitant]
     Route: 065

REACTIONS (2)
  - SWOLLEN TONGUE [None]
  - SALIVARY GLAND ENLARGEMENT [None]
